FAERS Safety Report 6223450-X (Version None)
Quarter: 2009Q2

REPORT INFORMATION
  Report Type: 
  Country: None (occurrence: None)
  Receive Date: 20090609
  Receipt Date: 20090528
  Transmission Date: 20091009
  Serious: Yes (Other)
  Sender: FDA-Public Use
  Company Number: GXKR2009GB06318

PATIENT
  Sex: Male

DRUGS (4)
  1. RISPERIDONE [Suspect]
  2. DIAZEPAM [Suspect]
  3. HALOPERIDOL [Suspect]
  4. CLOPIXOL ACUPHASE (ZUCLOPENTHIXOL ACETATE) [Suspect]

REACTIONS (20)
  - ABASIA [None]
  - ALTERED STATE OF CONSCIOUSNESS [None]
  - APATHY [None]
  - DELUSION [None]
  - DISTURBANCE IN ATTENTION [None]
  - DRUG TOXICITY [None]
  - DYSARTHRIA [None]
  - EMOTIONAL DISORDER [None]
  - EXTRAPYRAMIDAL DISORDER [None]
  - FALL [None]
  - FLAT AFFECT [None]
  - GENERAL PHYSICAL HEALTH DETERIORATION [None]
  - INDIFFERENCE [None]
  - LIP DISORDER [None]
  - METABOLIC DISORDER [None]
  - NEUROLEPTIC MALIGNANT SYNDROME [None]
  - QUALITY OF LIFE DECREASED [None]
  - SALIVARY HYPERSECRETION [None]
  - TARDIVE DYSKINESIA [None]
  - URINARY INCONTINENCE [None]
